FAERS Safety Report 25390011 (Version 1)
Quarter: 2025Q2

REPORT INFORMATION
  Report Type: Spontaneous
  Country: US (occurrence: None)
  Receive Date: 20250602
  Receipt Date: 20250602
  Transmission Date: 20250717
  Serious: Yes (Death)
  Sender: FDA-CTU
  Company Number: None

PATIENT
  Age: 67 Year
  Sex: Male

DRUGS (6)
  1. MYCOPHENOLIC ACID [Suspect]
     Active Substance: MYCOPHENOLIC ACID
     Indication: Bone marrow transplant
     Dosage: FREQUENCY : TWICE A DAY;?
     Route: 048
  2. posaconazole 100 [Concomitant]
  3. URSODIOL [Concomitant]
     Active Substance: URSODIOL
     Dates: start: 20241111, end: 20250422
  4. TACROLIMUS [Concomitant]
     Active Substance: TACROLIMUS
     Dates: start: 20241111, end: 20250422
  5. PREVYMIS [Concomitant]
     Active Substance: LETERMOVIR
     Dates: start: 20241111
  6. TACROLIMUS [Concomitant]
     Active Substance: TACROLIMUS
     Dates: start: 20241111, end: 20250422

REACTIONS (1)
  - Acute myeloid leukaemia [None]

NARRATIVE: CASE EVENT DATE: 20250422
